FAERS Safety Report 23226082 (Version 1)
Quarter: 2023Q4

REPORT INFORMATION
  Report Type: Spontaneous
  Country: CA (occurrence: CA)
  Receive Date: 20231124
  Receipt Date: 20231124
  Transmission Date: 20240110
  Serious: Yes (Hospitalization, Other)
  Sender: FDA-Public Use
  Company Number: CA-SA-2023SA097900

PATIENT

DRUGS (6)
  1. HYDROXYCHLOROQUINE [Suspect]
     Active Substance: HYDROXYCHLOROQUINE
     Indication: Product used for unknown indication
     Dosage: 200 MG, BID (PLAQUENIL)
     Route: 048
     Dates: start: 2020, end: 2022
  2. ENBREL [Suspect]
     Active Substance: ETANERCEPT
     Indication: Rheumatoid arthritis
     Dosage: 1 DOSAGE FORM
     Route: 065
  3. ENBREL [Suspect]
     Active Substance: ETANERCEPT
     Dosage: 1 DOSAGE FORM, WEEKLY
     Route: 058
     Dates: start: 202203, end: 20230311
  4. FOLIC ACID [Concomitant]
     Active Substance: FOLIC ACID
     Dosage: 5 MG, WEEKLY
     Route: 048
  5. SULFASALAZINE [Concomitant]
     Active Substance: SULFASALAZINE
     Dosage: 1000 MG, BID
     Route: 048
  6. METHOTREXATE [Concomitant]
     Active Substance: METHOTREXATE
     Dosage: 20 MG, WEEKLY
     Route: 048

REACTIONS (7)
  - Pericardial effusion [Unknown]
  - Knee arthroplasty [Unknown]
  - Hepatic steatosis [Unknown]
  - Anxiety [Unknown]
  - Intervertebral disc degeneration [Unknown]
  - Cardiac murmur [Unknown]
  - Drug ineffective [Unknown]
